FAERS Safety Report 11868282 (Version 2)
Quarter: 2015Q4

REPORT INFORMATION
  Report Type: Report from Study
  Country: FR (occurrence: FR)
  Receive Date: 20151224
  Receipt Date: 20151228
  Transmission Date: 20160305
  Serious: Yes (Hospitalization, Other)
  Sender: FDA-Public Use
  Company Number: FR-B.I. PHARMACEUTICALS,INC./RIDGEFIELD-2014-BI-55533II

PATIENT
  Age: 73 Year
  Sex: Male
  Weight: 63 kg

DRUGS (33)
  1. FORLAX [Concomitant]
     Active Substance: POLYETHYLENE GLYCOL 4000
     Indication: CONSTIPATION PROPHYLAXIS
     Dosage: DOSE PER APPLICATION: 1 SACHET
     Route: 065
     Dates: start: 20140902
  2. DOXYCYCLINE. [Concomitant]
     Active Substance: DOXYCYCLINE
     Dosage: 200 MG
     Route: 065
     Dates: start: 20140711
  3. MEDROL [Concomitant]
     Active Substance: METHYLPREDNISOLONE
     Indication: PRODUCT USED FOR UNKNOWN INDICATION
     Route: 065
     Dates: start: 20140831, end: 20140902
  4. CIFLOX [Concomitant]
     Active Substance: CIPROFLOXACIN
     Indication: HYPERTHERMIA
     Dosage: 1000 MG
     Route: 065
     Dates: start: 20140912, end: 20140918
  5. THERALENE [Concomitant]
     Active Substance: TRIMEPRAZINE
     Indication: INSOMNIA
     Dosage: DOSE PER APPLCIATION: 10
     Route: 065
     Dates: start: 20140523
  6. DOXYCYCLINE. [Concomitant]
     Active Substance: DOXYCYCLINE
     Dosage: 100 MG
     Route: 065
     Dates: start: 20140530, end: 20140710
  7. PARACETAMOL [Concomitant]
     Active Substance: ACETAMINOPHEN
     Indication: PRODUCT USED FOR UNKNOWN INDICATION
     Route: 048
  8. TOLEXINE [Concomitant]
     Active Substance: DOXYCYCLINE
     Indication: PROPHYLAXIS
     Dosage: 100 MG
     Route: 065
     Dates: start: 20140418, end: 20140515
  9. IMOVANE [Concomitant]
     Active Substance: ZOPICLONE
     Indication: INSOMNIA
     Dosage: 7.5 MG
     Route: 065
     Dates: start: 20140425
  10. GAVISCON [Concomitant]
     Active Substance: ALUMINUM HYDROXIDE\MAGNESIUM CARBONATE
     Indication: PRODUCT USED FOR UNKNOWN INDICATION
     Dosage: DOSE PER APPLCIATION: 1 SACHET
     Route: 065
     Dates: start: 20140502
  11. AUGMENTIN [Concomitant]
     Active Substance: AMOXICILLIN\CLAVULANATE POTASSIUM
     Indication: HYPERTHERMIA
     Dosage: 3 G
     Route: 065
     Dates: start: 20140909, end: 20140915
  12. DIFFU K [Concomitant]
     Active Substance: POTASSIUM CHLORIDE
     Indication: HYPOKALAEMIA
     Dosage: 1 ANZ
     Route: 065
     Dates: start: 20140919
  13. SPASGON LYOC [Concomitant]
     Indication: ABDOMINAL PAIN
     Route: 065
     Dates: start: 20140905
  14. BIBW 2992 [Suspect]
     Active Substance: AFATINIB
     Indication: COLORECTAL CANCER METASTATIC
     Dosage: CUMULATIVE DOSE SINCE FIRST ADMINISTRATION: 3010 MG
     Route: 048
     Dates: start: 20140418, end: 20141008
  15. GLYCEROL\PARAFFIN [Concomitant]
     Active Substance: GLYCERIN\PARAFFIN
     Indication: PROPHYLAXIS
     Dosage: 2 ANZ
     Route: 065
     Dates: start: 20140418
  16. CLOBEX [Concomitant]
     Active Substance: CLOBETASOL PROPIONATE
     Indication: SKIN TOXICITY
     Dosage: DOSE PER APPLCIATION: 5
     Route: 065
     Dates: start: 20140516
  17. MAG 2 [Concomitant]
     Active Substance: MAGNESIUM CHLORIDE
     Indication: HYPOMAGNESAEMIA
     Dosage: 300 MG
     Route: 065
     Dates: start: 20140711
  18. DOLIPRANE [Concomitant]
     Active Substance: ACETAMINOPHEN
     Indication: ABDOMINAL PAIN
     Dosage: DOSE PER APPLICATION : 1 GELLE
     Route: 065
     Dates: start: 20140905
  19. DIPROSONE [Concomitant]
     Active Substance: BETAMETHASONE DIPROPIONATE
     Route: 065
     Dates: start: 20140627
  20. DOXYCYCLINE. [Concomitant]
     Active Substance: DOXYCYCLINE
     Indication: SKIN TOXICITY
     Dosage: 200 MG
     Route: 065
     Dates: start: 20140516, end: 20140530
  21. MAG Z [Concomitant]
     Indication: PRODUCT USED FOR UNKNOWN INDICATION
     Route: 048
  22. TAHOR [Concomitant]
     Active Substance: ATORVASTATIN CALCIUM
     Indication: HYPERCHOLESTEROLAEMIA
     Dosage: 60 MG
     Route: 065
     Dates: start: 201208
  23. FORLAX [Concomitant]
     Active Substance: POLYETHYLENE GLYCOL 4000
     Indication: CONSTIPATION
     Dosage: DOSE PER APPLICATION: 1 SACHET
     Route: 065
  24. CETUXIMAB [Suspect]
     Active Substance: CETUXIMAB
     Indication: COLORECTAL CANCER METASTATIC
     Dosage: 684 MG
     Route: 042
     Dates: start: 20140418, end: 20150919
  25. SECTRAL [Concomitant]
     Active Substance: ACEBUTOLOL HYDROCHLORIDE
     Indication: ACUTE CORONARY SYNDROME
     Dosage: 200 MG
     Route: 048
     Dates: start: 201208
  26. BICARBONATE DE SODIUM [Concomitant]
     Active Substance: SODIUM BICARBONATE
     Indication: PROPHYLAXIS
     Dosage: DOSE PER APPLCIATION: 1
     Route: 065
     Dates: start: 20140418
  27. VOGALENE [Concomitant]
     Active Substance: METOPIMAZINE
     Indication: NAUSEA
     Dosage: DOSE PER APPLCIATION: 1 SACHET
     Route: 065
     Dates: start: 20140502
  28. KARDEGIC [Concomitant]
     Active Substance: ASPIRIN LYSINE
     Indication: ACUTE CORONARY SYNDROME
     Dosage: 75 MG
     Route: 048
     Dates: start: 201208
  29. AHCL [Concomitant]
     Indication: PRODUCT USED FOR UNKNOWN INDICATION
     Route: 048
  30. PHOSPHONEUROS [Concomitant]
     Active Substance: CALCIUM PHOSPHATE, DIBASIC, ANHYDROUS\MAGNESIUM GLYCEROPHOSPHATE\PHOSPHORIC ACID\SODIUM PHOSPHATE, DIBASIC
     Indication: HYPOPHOSPHATASIA
     Dosage: DOSE PER APPLICATION: 1 GARETTES
     Route: 065
     Dates: start: 20140418
  31. ALPRAZOLAM. [Concomitant]
     Active Substance: ALPRAZOLAM
     Indication: ANXIETY
     Dosage: 25 MG
     Route: 065
     Dates: start: 20140418
  32. DIPROSONE [Concomitant]
     Active Substance: BETAMETHASONE DIPROPIONATE
     Indication: SKIN TOXICITY
     Route: 065
     Dates: start: 20140613
  33. INEXIUM [Concomitant]
     Active Substance: ESOMEPRAZOLE
     Indication: PROPHYLAXIS
     Dosage: 20 MG
     Route: 065
     Dates: start: 20140831, end: 20140902

REACTIONS (2)
  - Performance status decreased [Not Recovered/Not Resolved]
  - Hypomagnesaemia [Unknown]

NARRATIVE: CASE EVENT DATE: 20141009
